FAERS Safety Report 5160274-9 (Version None)
Quarter: 2006Q4

REPORT INFORMATION
  Report Type: 
  Country: None (occurrence: None)
  Receive Date: 20061129
  Receipt Date: 20060612
  Transmission Date: 20070319
  Serious: Yes (Hospitalization, Other)
  Sender: FDA-Public Use
  Company Number: FI-GLAXOSMITHKLINE-B0427642A

PATIENT
  Age: 48 Year
  Sex: Male

DRUGS (3)
  1. AVANDAMET [Suspect]
     Dosage: 1MG UNKNOWN
     Route: 048
     Dates: start: 20060201
  2. AVANDAMET [Suspect]
     Route: 048
     Dates: start: 20060508, end: 20060529
  3. SIRDALUD RETARD [Concomitant]
     Dosage: 6MG UNKNOWN
     Route: 048

REACTIONS (3)
  - ATRIAL FIBRILLATION [None]
  - CARDIAC FAILURE ACUTE [None]
  - CONDITION AGGRAVATED [None]
